FAERS Safety Report 9062349 (Version 2)
Quarter: 2013Q1

REPORT INFORMATION
  Report Type: Report from Study
  Country: US (occurrence: US)
  Receive Date: 20130213
  Receipt Date: 20130226
  Transmission Date: 20140127
  Serious: Yes (Life-Threatening)
  Sender: FDA-Public Use
  Company Number: US-GLAXOSMITHKLINE-A1011719A

PATIENT
  Sex: Female

DRUGS (3)
  1. ELTROMBOPAG [Suspect]
     Indication: ACUTE MYELOID LEUKAEMIA
     Dosage: 200MG PER DAY
     Route: 048
     Dates: start: 20130124, end: 20130203
  2. CYTARABINE [Suspect]
     Indication: ACUTE MYELOID LEUKAEMIA
     Dosage: 2300MG TWICE PER DAY
     Route: 042
     Dates: start: 20130109, end: 20130115
  3. MITOXANTRONE [Suspect]
     Indication: ACUTE MYELOID LEUKAEMIA
     Dosage: 19MG PER DAY
     Route: 042
     Dates: start: 20130110, end: 20130112

REACTIONS (1)
  - Myocardial ischaemia [Not Recovered/Not Resolved]
